FAERS Safety Report 7007327-8 (Version None)
Quarter: 2010Q3

REPORT INFORMATION
  Report Type: 
  Country: None (occurrence: None)
  Receive Date: 20100922
  Receipt Date: 20100917
  Transmission Date: 20110219
  Serious: Yes (Hospitalization)
  Sender: FDA-Public Use
  Company Number: FR-WYE-G06683610

PATIENT
  Age: 46 Year
  Sex: Male

DRUGS (5)
  1. ADVIL LIQUI-GELS [Suspect]
     Indication: MIGRAINE
     Dosage: UNKNOWN
     Route: 048
     Dates: start: 20100601, end: 20100601
  2. KESTINE [Concomitant]
     Dosage: UNKNOWN
     Route: 048
     Dates: start: 20100601, end: 20100601
  3. COLCHICINE [Concomitant]
     Dosage: UNKNOWN
     Route: 048
     Dates: start: 20100703, end: 20100704
  4. CEFUROXIME [Concomitant]
     Dosage: UNKNOWN
     Route: 048
     Dates: start: 20100601, end: 20100601
  5. PROFENID [Concomitant]
     Dosage: UNKNOWN
     Route: 048
     Dates: start: 20100601, end: 20100601

REACTIONS (4)
  - APHTHOUS STOMATITIS [None]
  - CRYSTAL ARTHROPATHY [None]
  - DRUG RASH WITH EOSINOPHILIA AND SYSTEMIC SYMPTOMS [None]
  - MYALGIA [None]
